FAERS Safety Report 25293993 (Version 1)
Quarter: 2025Q2

REPORT INFORMATION
  Report Type: Spontaneous
  Country: US (occurrence: US)
  Receive Date: 20250510
  Receipt Date: 20250510
  Transmission Date: 20250716
  Serious: No
  Sender: SANOFI AVENTIS
  Company Number: US-SA-2025SA129963

PATIENT
  Age: 79 Year
  Sex: Female
  Weight: 59.09 kg

DRUGS (7)
  1. DUPIXENT [Suspect]
     Active Substance: DUPILUMAB
     Indication: Neurodermatitis
     Dosage: 300 MG, QOW
     Route: 058
     Dates: start: 202412
  2. VITAMIN D3 [Concomitant]
     Active Substance: CHOLECALCIFEROL
  3. ALEVE [Concomitant]
     Active Substance: NAPROXEN SODIUM
  4. FORTEO [Concomitant]
     Active Substance: TERIPARATIDE
  5. LEVOTHYROXINE [Concomitant]
     Active Substance: LEVOTHYROXINE
  6. CALTRATE WITH VITAMIN D [Concomitant]
     Active Substance: CALCIUM CARBONATE\CHOLECALCIFEROL
  7. OTEZLA [Concomitant]
     Active Substance: APREMILAST

REACTIONS (2)
  - Sleep disorder due to a general medical condition [Not Recovered/Not Resolved]
  - Pruritus [Not Recovered/Not Resolved]
